FAERS Safety Report 7501914-6 (Version None)
Quarter: 2011Q2

REPORT INFORMATION
  Report Type: 
  Country: None (occurrence: None)
  Receive Date: 20110523
  Receipt Date: 20110523
  Transmission Date: 20111010
  Serious: Yes (Other)
  Sender: FDA-Public Use
  Company Number: None

PATIENT
  Age: 62 Year
  Sex: Male
  Weight: 78.4723 kg

DRUGS (1)
  1. SILENOR [Suspect]
     Indication: INSOMNIA
     Dosage: 3MG QHS PO
     Route: 048
     Dates: start: 20110507

REACTIONS (2)
  - EYE DISORDER [None]
  - VISUAL IMPAIRMENT [None]
